FAERS Safety Report 9039032 (Version 1)
Quarter: 2013Q1

REPORT INFORMATION
  Report Type: Report from Study
  Country: US (occurrence: US)
  Receive Date: 20130129
  Receipt Date: 20130129
  Transmission Date: 20140127
  Serious: No
  Sender: FDA-Public Use
  Company Number: US-ABBOTT-12P-163-0933296-00

PATIENT
  Age: 44 Year
  Sex: Female

DRUGS (6)
  1. HUMIRA 40 MG/0.8 ML PEN [Suspect]
     Indication: PSORIASIS
     Dosage: 80 MG LOADING DOSE
     Dates: start: 20120425, end: 20120425
  2. HUMIRA 40 MG/0.8 ML PEN [Suspect]
  3. BENADRYL [Concomitant]
     Indication: PRURITUS
     Route: 048
  4. BENADRYL [Concomitant]
     Indication: SEASONAL ALLERGY
  5. CLOBETASOL [Concomitant]
     Indication: PSORIASIS
  6. ALBUTEROL [Concomitant]
     Indication: ASTHMA
     Route: 055

REACTIONS (1)
  - Rash [Not Recovered/Not Resolved]
